FAERS Safety Report 8049898-9 (Version None)
Quarter: 2012Q1

REPORT INFORMATION
  Report Type: 
  Country: None (occurrence: None)
  Receive Date: 20120117
  Receipt Date: 20120112
  Transmission Date: 20120608
  Serious: No
  Sender: FDA-Public Use
  Company Number: US-PFIZER INC-2012010029

PATIENT
  Sex: Female
  Weight: 104 kg

DRUGS (3)
  1. HYDROCHLOROTHIAZIDE [Concomitant]
     Dosage: 12.5 MG, UNK
  2. AMLODIPINE [Concomitant]
     Dosage: 5 MG, UNK
  3. ESTRING [Suspect]
     Indication: MENOPAUSE
     Dosage: 2 MG, 1X/DAY
     Dates: start: 20120111, end: 20120111

REACTIONS (1)
  - PAIN [None]
